FAERS Safety Report 8431564-9 (Version None)
Quarter: 2012Q2

REPORT INFORMATION
  Report Type: 
  Country: None (occurrence: None)
  Receive Date: 20120323
  Receipt Date: 20110617
  Transmission Date: 20120825
  Serious: Yes (Hospitalization)
  Sender: FDA-Public Use
  Company Number: 163-21880-11062798

PATIENT
  Age: 66 Year
  Sex: Female

DRUGS (7)
  1. LIPITOR [Concomitant]
  2. ATENOLOL [Concomitant]
  3. DEXAMETHASONE [Concomitant]
  4. REVLIMID [Suspect]
     Indication: MULTIPLE MYELOMA
     Dosage: 25 MG, 1 IN 1 D, PO; 15 MG, 1 IN 1 D, PO
     Route: 048
     Dates: start: 20110620
  5. REVLIMID [Suspect]
     Indication: MULTIPLE MYELOMA
     Dosage: 25 MG, 1 IN 1 D, PO; 15 MG, 1 IN 1 D, PO
     Route: 048
     Dates: start: 20100801, end: 20100101
  6. DIAZEPAM [Concomitant]
  7. AMLODIPINE BESYLATE AND BENAZEPRIL HYDROCHLORIDE [Suspect]

REACTIONS (3)
  - DEHYDRATION [None]
  - DIARRHOEA [None]
  - CHEST PAIN [None]
